FAERS Safety Report 4366126-6 (Version None)
Quarter: 2004Q2

REPORT INFORMATION
  Report Type: 
  Country: None (occurrence: None)
  Receive Date: 20040524
  Receipt Date: 20040507
  Transmission Date: 20050107
  Serious: Yes (Hospitalization)
  Sender: FDA-Public Use
  Company Number: 2003-05796

PATIENT
  Age: 44 Year
  Sex: Male

DRUGS (3)
  1. ADEFOVIR DIPIVOXIL (ADEFOVIR DIPIVOXIL) (10 MILLIGRAM) [Suspect]
     Indication: HEPATITIS B
     Dosage: 10 MG, 1 IN 1 D, ORAL
     Route: 048
     Dates: start: 20010321, end: 20030319
  2. LAMIVUDINE (LAMIVUDINE) [Suspect]
     Indication: HEPATITIS B
     Dosage: 100 MG, 1 IN 1 D, ORAL
     Route: 048
     Dates: start: 20010321, end: 20030319
  3. OPIPRAMOL HYDROCHLORIDE (OPIPRAMOL HYDROCHLORIDE) [Suspect]
     Indication: PARANOIA
     Dates: start: 20020315, end: 20030513

REACTIONS (3)
  - CONDITION AGGRAVATED [None]
  - HEPATITIS B [None]
  - PARANOIA [None]
